FAERS Safety Report 7079312-1 (Version None)
Quarter: 2010Q4

REPORT INFORMATION
  Report Type: 
  Country: None (occurrence: None)
  Receive Date: 20101102
  Receipt Date: 20091204
  Transmission Date: 20110411
  Serious: No
  Sender: FDA-Public Use
  Company Number: A0807679A

PATIENT
  Age: 78 Year
  Sex: Female

DRUGS (1)
  1. RYTHMOL SR [Suspect]
     Dosage: 225MG TWICE PER DAY
     Route: 048
     Dates: start: 20080718, end: 20090915

REACTIONS (2)
  - PALPITATIONS [None]
  - PRODUCT QUALITY ISSUE [None]
